FAERS Safety Report 13698204 (Version 2)
Quarter: 2017Q3

REPORT INFORMATION
  Report Type: Spontaneous
  Country: US (occurrence: US)
  Receive Date: 20170628
  Receipt Date: 20170831
  Transmission Date: 20171127
  Serious: No
  Sender: FDA-Public Use
  Company Number: US-PFIZER INC-2017275533

PATIENT
  Age: 65 Year
  Sex: Female
  Weight: 68.4 kg

DRUGS (2)
  1. LATANOPROST. [Suspect]
     Active Substance: LATANOPROST
     Indication: PROPHYLAXIS
     Dosage: 2 GTT, DAILY(ONE DROP IN EACH EYE DAILY)
     Route: 047
     Dates: start: 2008
  2. LATANOPROST. [Suspect]
     Active Substance: LATANOPROST
     Indication: EYE DISORDER

REACTIONS (5)
  - Eye infection [Recovered/Resolved]
  - Eyelid oedema [Recovered/Resolved]
  - Drug dose omission [Unknown]
  - Eye pruritus [Recovered/Resolved]
  - Eye irritation [Recovered/Resolved]

NARRATIVE: CASE EVENT DATE: 20170503
